FAERS Safety Report 19829547 (Version 14)
Quarter: 2022Q1

REPORT INFORMATION
  Report Type: Report from Study
  Country: AU (occurrence: AU)
  Receive Date: 20210914
  Receipt Date: 20220308
  Transmission Date: 20220423
  Serious: Yes (Hospitalization, Other)
  Sender: FDA-Public Use
  Company Number: AU-BIOGEN-2021BI01047682

PATIENT
  Sex: Male

DRUGS (4)
  1. TYSABRI [Suspect]
     Active Substance: NATALIZUMAB
     Indication: Relapsing-remitting multiple sclerosis
     Route: 042
     Dates: start: 20210320
  2. PFIZER-BIONTECH COVID-19 VACCINE [Suspect]
     Active Substance: TOZINAMERAN
     Indication: COVID-19 prophylaxis
     Dosage: THIRD VACCINE
     Route: 065
     Dates: start: 20211222
  3. VITAMIN D [Concomitant]
     Active Substance: VITAMIN D NOS
     Indication: Supplementation therapy
     Route: 065
     Dates: end: 202110
  4. BACLOFEN [Concomitant]
     Active Substance: BACLOFEN
     Indication: Product used for unknown indication
     Route: 065
     Dates: start: 202104

REACTIONS (16)
  - Blindness transient [Recovered/Resolved]
  - Oesophageal rupture [Unknown]
  - Hiatus hernia [Not Recovered/Not Resolved]
  - Self-induced vomiting [Not Recovered/Not Resolved]
  - Dehydration [Unknown]
  - Dyspepsia [Recovered/Resolved]
  - Thirst [Recovered/Resolved]
  - Flatulence [Not Recovered/Not Resolved]
  - Gastric disorder [Recovered/Resolved]
  - Impaired gastric emptying [Unknown]
  - Anxiety [Not Recovered/Not Resolved]
  - Abdominal distension [Not Recovered/Not Resolved]
  - Vaccination site pain [Not Recovered/Not Resolved]
  - Food allergy [Unknown]
  - Nausea [Not Recovered/Not Resolved]
  - Fatigue [Not Recovered/Not Resolved]

NARRATIVE: CASE EVENT DATE: 20210101
